FAERS Safety Report 8859927 (Version 2)
Quarter: 2016Q3

REPORT INFORMATION
  Report Type: Spontaneous
  Country: US (occurrence: US)
  Receive Date: 20121025
  Receipt Date: 20160830
  Transmission Date: 20161109
  Serious: No
  Sender: FDA-Public Use
  Company Number: US-ELI_LILLY_AND_COMPANY-US201210003578

PATIENT
  Sex: Male

DRUGS (5)
  1. ZYPREXA [Suspect]
     Active Substance: OLANZAPINE
     Dosage: 5 MG, QD
     Route: 065
     Dates: end: 20040301
  2. RISPERIDONE. [Concomitant]
     Active Substance: RISPERIDONE
     Dosage: UNK, UNKNOWN
     Route: 065
  3. ZYPREXA [Suspect]
     Active Substance: OLANZAPINE
     Dosage: 1 DF, PRN
     Route: 065
  4. PROLIXIN [Concomitant]
     Active Substance: FLUPHENAZINE HYDROCHLORIDE
     Dosage: UNK, UNKNOWN
     Route: 065
  5. ZYPREXA [Suspect]
     Active Substance: OLANZAPINE
     Indication: CONFUSIONAL STATE
     Dosage: 10 MG, QD
     Route: 065
     Dates: start: 1997

REACTIONS (11)
  - Depression [Recovered/Resolved]
  - Somnolence [Unknown]
  - Fatigue [Recovered/Resolved]
  - Off label use [Recovered/Resolved]
  - Pollakiuria [Unknown]
  - Platelet count decreased [Recovered/Resolved]
  - Cough [Recovered/Resolved]
  - Body temperature increased [Recovered/Resolved]
  - Malaise [Unknown]
  - Blister [Unknown]
  - Epistaxis [Unknown]

NARRATIVE: CASE EVENT DATE: 2001
